FAERS Safety Report 25649490 (Version 1)
Quarter: 2025Q3

REPORT INFORMATION
  Report Type: Spontaneous
  Country: MY (occurrence: MY)
  Receive Date: 20250806
  Receipt Date: 20250806
  Transmission Date: 20251020
  Serious: Yes (Other)
  Sender: RANBAXY
  Company Number: MY-SUN PHARMACEUTICAL INDUSTRIES LTD-2025R1-520949

PATIENT
  Age: 22 Year
  Sex: Female

DRUGS (1)
  1. SERTRALINE HYDROCHLORIDE [Suspect]
     Active Substance: SERTRALINE HYDROCHLORIDE
     Indication: Depression
     Dosage: 2 GRAM, QD
     Route: 048

REACTIONS (5)
  - Serotonin syndrome [Recovering/Resolving]
  - Dizziness [Recovering/Resolving]
  - Overdose [Unknown]
  - Medication error [Unknown]
  - Nystagmus [Recovering/Resolving]
